FAERS Safety Report 21553912 (Version 1)
Quarter: 2022Q4

REPORT INFORMATION
  Report Type: Spontaneous
  Country: ES (occurrence: ES)
  Receive Date: 20221104
  Receipt Date: 20221104
  Transmission Date: 20230112
  Serious: Yes (Other)
  Sender: FDA-Public Use
  Company Number: None

PATIENT
  Age: 70 Year
  Sex: Male

DRUGS (10)
  1. CLOPIDOGREL [Suspect]
     Active Substance: CLOPIDOGREL BISULFATE
     Indication: Angina pectoris
     Dosage: 75.0 MG DE, STRENGTH : 75 MG
     Route: 065
     Dates: start: 20221006
  2. ELIQUIS [Suspect]
     Active Substance: APIXABAN
     Indication: Atrial fibrillation
     Dosage: 10 MILLIGRAM DAILY; 5.0MG C/12H, STRENGTH : 5 MG, 60 TABLETS
     Route: 065
     Dates: start: 20220502
  3. ASPIRIN [Suspect]
     Active Substance: ASPIRIN
     Indication: Angina pectoris
     Dosage: 100.0 MG DE, ADIRO 100 MG GASTRO-RESISTANT TABLETS EFG, 30 TABLETS (PVC- ALUMINUM)
     Route: 065
     Dates: start: 20221006
  4. SYMBICORT [Concomitant]
     Active Substance: BUDESONIDE\FORMOTEROL FUMARATE DIHYDRATE
     Indication: Dyspnoea
     Dosage: 4 DOSAGE FORMS DAILY; 2.0 PUFF C/12 H, SYMBICORT 160 MICROGRAMS/4.5 MICROGRAMS/INHALATION PRESSURE I
     Dates: start: 20211221
  5. BISOPROLOL FUMARATE [Concomitant]
     Active Substance: BISOPROLOL FUMARATE
     Indication: Angina pectoris
     Dosage: 2.5 MG DE, BISOPROLOL CINFA 2.5 MG TABLETS EFG, 28 TABLETS (PVC/PVDC-ALUMINUM BLISTER)
     Dates: start: 20221006
  6. CHONDROSAN [Concomitant]
     Indication: Osteoarthritis
     Dosage: 800.0 MG DE, STRENGTH : 60 CAPSULES
     Dates: start: 20160212
  7. CAFINITHRINE [Concomitant]
     Indication: Angina pectoris
     Dosage: 1 MILLIGRAM DAILY;  COATED SUBLINGUAL TABLETS, 20 TABLETS
     Dates: start: 20221006
  8. PANTOPRAZOLE CINFA [Concomitant]
     Indication: Aortic anastomosis
     Dosage: 40.0 MG DE, STRENGTH : 40 MG GASTRO-RESISTANT TABLETS EFG, 56 TABLETS (BLISTER)
     Dates: start: 20221006
  9. TAMSULOSIN HYDROCHLORIDE [Concomitant]
     Active Substance: TAMSULOSIN HYDROCHLORIDE
     Indication: Renal colic
     Dosage: 0.4 MG DE, STRENGTH :  0.4 MG MODIFIED RELEASE CAPSULES, 30 CAPSULES
     Dates: start: 20220303
  10. ATORVASTATIN CALCIUM [Concomitant]
     Active Substance: ATORVASTATIN CALCIUM
     Indication: Angina pectoris
     Dosage: 80.0 MG CE, STRENGTH : 80 MG, 28 TABLETS
     Dates: start: 20221005

REACTIONS (2)
  - Abdominal pain [Unknown]
  - Haematochezia [Unknown]

NARRATIVE: CASE EVENT DATE: 20221007
